FAERS Safety Report 14273250 (Version 2)
Quarter: 2018Q4

REPORT INFORMATION
  Report Type: Spontaneous
  Country: US (occurrence: US)
  Receive Date: 20171211
  Receipt Date: 20181218
  Transmission Date: 20190204
  Serious: Yes (Hospitalization, Other)
  Sender: FDA-Public Use
  Company Number: US-OTSUKA-2017_020039

PATIENT
  Age: 57 Year
  Sex: Male

DRUGS (8)
  1. RANITIDINE HCL [Concomitant]
     Active Substance: RANITIDINE HYDROCHLORIDE
     Indication: DYSPEPSIA
     Dosage: 150 MG, BID
     Route: 048
  2. TRAMADOL. [Concomitant]
     Active Substance: TRAMADOL
     Indication: ARTHRALGIA
     Dosage: 100 MG, EVERY 6 HOUR AS NEEDED
     Route: 048
  3. SILDENAFIL CITRATE. [Concomitant]
     Active Substance: SILDENAFIL CITRATE
     Indication: SEXUAL ACTIVITY INCREASED
     Dosage: 100 MG, QD
     Route: 048
  4. CAPSAICIN. [Concomitant]
     Active Substance: CAPSAICIN
     Indication: PRODUCT USED FOR UNKNOWN INDICATION
     Dosage: UNK, TID
     Route: 061
  5. NALTREXONE [Concomitant]
     Active Substance: NALTREXONE
     Indication: PRODUCT USED FOR UNKNOWN INDICATION
     Dosage: UNK
     Route: 065
  6. ACETAMINOPHEN. [Concomitant]
     Active Substance: ACETAMINOPHEN
     Indication: PAIN
     Dosage: 325 MG, QD
     Route: 048
  7. HYDROXYZINE HCL [Concomitant]
     Active Substance: HYDROXYZINE HYDROCHLORIDE
     Indication: ANXIETY
     Dosage: 25 MG, QD
     Route: 048
  8. ABILIFY [Suspect]
     Active Substance: ARIPIPRAZOLE
     Indication: BIPOLAR DISORDER
     Dosage: 30 MG, UNK
     Route: 048
     Dates: start: 2008, end: 20160401

REACTIONS (22)
  - Blood potassium increased [Unknown]
  - Erectile dysfunction [Unknown]
  - Anxiety [Unknown]
  - Psychosexual disorder [Unknown]
  - Impulsive behaviour [Unknown]
  - Blood cholesterol increased [Unknown]
  - Emotional distress [Unknown]
  - Gambling disorder [Unknown]
  - Low density lipoprotein increased [Unknown]
  - Back pain [Unknown]
  - Mental disorder [Unknown]
  - Hyperlipidaemia [Unknown]
  - Obsessive-compulsive disorder [Unknown]
  - Weight increased [Unknown]
  - Rhinitis [Unknown]
  - Arthralgia [Unknown]
  - Homeless [Unknown]
  - Conjunctivitis allergic [Unknown]
  - Impulse-control disorder [Unknown]
  - Alcohol abuse [Unknown]
  - Vitamin D deficiency [Unknown]
  - Condition aggravated [Unknown]

NARRATIVE: CASE EVENT DATE: 2016
